FAERS Safety Report 4314776-5 (Version None)
Quarter: 2004Q1

REPORT INFORMATION
  Report Type: 
  Country: None (occurrence: None)
  Receive Date: 20040308
  Receipt Date: 20040227
  Transmission Date: 20041129
  Serious: Yes (Life-Threatening)
  Sender: FDA-Public Use
  Company Number: 2004SE01142

PATIENT
  Sex: Female

DRUGS (2)
  1. SEROQUEL [Suspect]
     Dosage: 400 MG DAILY PO
     Route: 048
  2. FLUPHENAZINE [Concomitant]

REACTIONS (1)
  - STATUS EPILEPTICUS [None]
